FAERS Safety Report 9224616 (Version 1)
Quarter: 2013Q1

REPORT INFORMATION
  Report Type: Spontaneous
  Country: US (occurrence: None)
  Receive Date: 20120917
  Receipt Date: 20120917
  Transmission Date: 20140127
  Serious: Yes (Hospitalization)
  Sender: FDA-Public Use
  Company Number: 1000030006

PATIENT
  Age: 62 Year
  Sex: Female
  Weight: 102.3 kg

DRUGS (14)
  1. CELEXA (CITALORPAM HYDROBROMIDE) [Suspect]
     Indication: DEPRESSION
     Dosage: 1 IN 1 D
     Dates: start: 20120226
  2. HUMIRA 40 MG/0.8 ML PEN (ADALIMUMAB) [Suspect]
     Indication: RHEUMATOID ARTHRITIS
     Dosage: 40 MG, 1 IN 2 WK
     Dates: start: 20111207, end: 20120309
  3. DILTIAZEM HYDROCHLORIDE [Suspect]
     Indication: ATRIAL FIBRILLATION
     Dates: start: 201111
  4. LISINOPRIL [Concomitant]
  5. FOLIC ACID [Concomitant]
  6. METHOTREXATE [Concomitant]
  7. BIOTIN [Concomitant]
  8. VITAMINS [Concomitant]
  9. INHALER [Concomitant]
  10. TRAMADOL [Concomitant]
  11. ACETYLSALICYLIC ACID [Concomitant]
  12. PARACETAMOL [Concomitant]
  13. ONE A DAY VITAMINS [Concomitant]
  14. LANSOPRAZOLE [Concomitant]

REACTIONS (1)
  - Palpitations [None]
